FAERS Safety Report 14734078 (Version 1)
Quarter: 2018Q2

REPORT INFORMATION
  Report Type: Spontaneous
  Country: US (occurrence: US)
  Receive Date: 20180409
  Receipt Date: 20180409
  Transmission Date: 20180711
  Serious: No
  Sender: FDA-Public Use
  Company Number: US-GLAXOSMITHKLINE-US2018058776

PATIENT
  Age: 75 Year
  Sex: Male

DRUGS (8)
  1. VENTOLIN HFA [Suspect]
     Active Substance: ALBUTEROL SULFATE
     Indication: PRODUCT USED FOR UNKNOWN INDICATION
     Route: 055
  2. METOPROLOL. [Concomitant]
     Active Substance: METOPROLOL
  3. VITAMIN D3 [Concomitant]
     Active Substance: CHOLECALCIFEROL
  4. TAMSULOSIN [Concomitant]
     Active Substance: TAMSULOSIN
  5. AMLODIPINE [Concomitant]
     Active Substance: AMLODIPINE BESYLATE
  6. ATORVASTATIN [Concomitant]
     Active Substance: ATORVASTATIN
  7. ASPIRIN. [Concomitant]
     Active Substance: ASPIRIN
  8. LOSARTAN. [Concomitant]
     Active Substance: LOSARTAN

REACTIONS (7)
  - Laryngitis [Recovering/Resolving]
  - Nausea [Recovering/Resolving]
  - Oropharyngeal pain [Recovering/Resolving]
  - Palpitations [Recovered/Resolved with Sequelae]
  - Headache [Recovering/Resolving]
  - Fatigue [Recovering/Resolving]
  - Cough [Recovering/Resolving]

NARRATIVE: CASE EVENT DATE: 20180403
